FAERS Safety Report 13567615 (Version 1)
Quarter: 2017Q2

REPORT INFORMATION
  Report Type: Spontaneous
  Country: US (occurrence: US)
  Receive Date: 20170522
  Receipt Date: 20170522
  Transmission Date: 20170830
  Serious: No
  Sender: FDA-Public Use
  Company Number: US-TEVA-748899ACC

PATIENT
  Sex: Female

DRUGS (1)
  1. MIMVEY [Suspect]
     Active Substance: ESTRADIOL\NORETHINDRONE ACETATE
     Dosage: DOSE STRENGTH:  1 MG/0.5 MG; DOSE: 1 TABLET

REACTIONS (2)
  - Nausea [Unknown]
  - Adverse drug reaction [Unknown]
